FAERS Safety Report 7583143-3 (Version None)
Quarter: 2011Q2

REPORT INFORMATION
  Report Type: 
  Country: None (occurrence: None)
  Receive Date: 20110630
  Receipt Date: 20110624
  Transmission Date: 20111010
  Serious: Yes (Hospitalization)
  Sender: FDA-Public Use
  Company Number: DE-ABBOTT-11P-062-0834437-00

PATIENT
  Sex: Male

DRUGS (1)
  1. HUMIRA [Suspect]
     Indication: CROHN'S DISEASE
     Route: 058
     Dates: start: 20110415, end: 20110601

REACTIONS (4)
  - PROCTITIS [None]
  - CROHN'S DISEASE [None]
  - INFLAMMATORY MARKER INCREASED [None]
  - HAEMATOCHEZIA [None]
